FAERS Safety Report 5840200-7 (Version None)
Quarter: 2008Q3

REPORT INFORMATION
  Report Type: 
  Country: None (occurrence: None)
  Receive Date: 20080807
  Receipt Date: 20080807
  Transmission Date: 20090109
  Serious: No
  Sender: FDA-Public Use
  Company Number: None

PATIENT
  Sex: Female
  Weight: 85.7 kg

DRUGS (1)
  1. PACLITAXEL [Suspect]
     Dosage: 15 MG

REACTIONS (3)
  - ABDOMINAL PAIN [None]
  - DRUG HYPERSENSITIVITY [None]
  - MALAISE [None]
